FAERS Safety Report 23207724 (Version 1)
Quarter: 2023Q4

REPORT INFORMATION
  Report Type: Report from Study
  Country: US (occurrence: US)
  Receive Date: 20231120
  Receipt Date: 20231120
  Transmission Date: 20240109
  Serious: Yes (Hospitalization, Other)
  Sender: FDA-Public Use
  Company Number: US-ABBVIE-5308904

PATIENT
  Sex: Male

DRUGS (2)
  1. VENCLEXTA [Suspect]
     Active Substance: VENETOCLAX
     Indication: Acute myeloid leukaemia
     Dosage: STRENGTH: 100 MG?TAKE 4 TABLET(S) BY MOUTH DAILY FOR 14 DAYS
     Route: 048
  2. VENCLEXTA [Suspect]
     Active Substance: VENETOCLAX
     Indication: Acute myeloid leukaemia
     Dosage: STRENGTH: 100 MG?TAKE 1 TABLET BY MOUTH DAILY FOR 28 DAYS
     Route: 048

REACTIONS (4)
  - Hospitalisation [Unknown]
  - Off label use [Unknown]
  - Dyspnoea [Unknown]
  - Leukaemia recurrent [Unknown]
